FAERS Safety Report 9408350 (Version 1)
Quarter: 2013Q3

REPORT INFORMATION
  Report Type: Spontaneous
  Country: CN (occurrence: CN)
  Receive Date: 20130718
  Receipt Date: 20130718
  Transmission Date: 20140515
  Serious: Yes (Other)
  Sender: FDA-Public Use
  Company Number: CN-GLAXOSMITHKLINE-B0908766A

PATIENT
  Age: 64 Year
  Sex: Female
  Weight: 71 kg

DRUGS (4)
  1. SEROXAT [Suspect]
     Indication: DEPRESSION
     Dosage: 20MG PER DAY
     Route: 048
     Dates: start: 20120401, end: 20120408
  2. SEROXAT [Suspect]
     Indication: DEPRESSION
     Dosage: 30MG PER DAY
     Route: 048
     Dates: start: 20120409, end: 20120412
  3. SEROXAT [Suspect]
     Indication: DEPRESSION
     Dosage: 20MG PER DAY
     Route: 048
     Dates: start: 20120413, end: 20120424
  4. TANDOSPIRONE CITRATE [Concomitant]

REACTIONS (2)
  - Hepatocellular injury [Recovered/Resolved]
  - Bundle branch block [Recovered/Resolved]
